FAERS Safety Report 8073567-2 (Version None)
Quarter: 2012Q1

REPORT INFORMATION
  Report Type: 
  Country: None (occurrence: None)
  Receive Date: 20120126
  Receipt Date: 20120112
  Transmission Date: 20120608
  Serious: Yes (Hospitalization, Other)
  Sender: FDA-Public Use
  Company Number: FR-UCBSA-046895

PATIENT
  Age: 63 Year
  Sex: Male

DRUGS (5)
  1. DEPAKENE [Concomitant]
     Indication: EPILEPSY
     Route: 048
  2. CORDARONE [Concomitant]
  3. MICARDIS HCT [Concomitant]
  4. TEGRETOL [Suspect]
     Indication: EPILEPSY
     Route: 048
  5. VIMPAT [Suspect]
     Indication: PARTIAL SEIZURES
     Route: 048
     Dates: start: 20090801, end: 20110101

REACTIONS (1)
  - ATRIAL FLUTTER [None]
